FAERS Safety Report 24813886 (Version 1)
Quarter: 2025Q1

REPORT INFORMATION
  Report Type: Spontaneous
  Country: GB (occurrence: GB)
  Receive Date: 20250107
  Receipt Date: 20250107
  Transmission Date: 20250409
  Serious: Yes (Death, Hospitalization)
  Sender: GENMAB
  Company Number: GB-ABBVIE-6070003

PATIENT
  Sex: Female

DRUGS (1)
  1. EPCORITAMAB [Suspect]
     Active Substance: EPCORITAMAB
     Indication: Diffuse large B-cell lymphoma
     Route: 058

REACTIONS (2)
  - Death [Fatal]
  - Malaise [Unknown]
